FAERS Safety Report 6545900-1 (Version None)
Quarter: 2010Q1

REPORT INFORMATION
  Report Type: 
  Country: None (occurrence: None)
  Receive Date: 20100121
  Receipt Date: 20100115
  Transmission Date: 20100710
  Serious: Yes (Hospitalization)
  Sender: FDA-Public Use
  Company Number: DE-GENENTECH-296944

PATIENT
  Sex: Female
  Weight: 23.2 kg

DRUGS (1)
  1. SOMATROPIN [Suspect]
     Indication: GROWTH RETARDATION
     Dosage: 0.6 MG, 7/WEEK
     Route: 065
     Dates: start: 20080527

REACTIONS (1)
  - ASTROCYTOMA [None]
